FAERS Safety Report 5709614-X (Version None)
Quarter: 2008Q2

REPORT INFORMATION
  Report Type: 
  Country: None (occurrence: None)
  Receive Date: 20080418
  Receipt Date: 20080410
  Transmission Date: 20081010
  Serious: Yes (Hospitalization)
  Sender: FDA-Public Use
  Company Number: B0360637A

PATIENT
  Age: 52 Year
  Sex: Male

DRUGS (11)
  1. PAROXETINE HCL [Suspect]
     Dates: start: 19960701
  2. PAROXETINE HCL [Suspect]
     Route: 065
  3. DIAZEPAM [Concomitant]
     Dates: start: 19851221
  4. AMITRIPTYLINE HCL [Concomitant]
     Dates: start: 19870321
  5. CITALOPRAM HYDROBROMIDE [Concomitant]
     Dates: start: 20020708
  6. PROZAC [Concomitant]
     Dates: start: 20030130
  7. GAMANIL [Concomitant]
     Dates: start: 19900223
  8. FLUPENTHIXOL [Concomitant]
     Dates: start: 20050201
  9. ST JOHNS WORT [Concomitant]
  10. ZOPICLONE [Concomitant]
  11. PROMETHAZINE [Concomitant]
     Dates: start: 20051101

REACTIONS (39)
  - ABDOMINAL PAIN UPPER [None]
  - AFFECT LABILITY [None]
  - AGITATION [None]
  - ANXIETY [None]
  - ARTHRALGIA [None]
  - CHEST PAIN [None]
  - CIRCULATORY COLLAPSE [None]
  - CONVULSION [None]
  - DECREASED APPETITE [None]
  - DECREASED INTEREST [None]
  - DIARRHOEA [None]
  - DISTURBANCE IN ATTENTION [None]
  - DIZZINESS [None]
  - DUODENITIS [None]
  - EARLY MORNING AWAKENING [None]
  - ERUCTATION [None]
  - FEAR [None]
  - HEMIPARESIS [None]
  - HYPERHIDROSIS [None]
  - HYPOACUSIS [None]
  - HYPOAESTHESIA [None]
  - ILL-DEFINED DISORDER [None]
  - INFLUENZA [None]
  - INITIAL INSOMNIA [None]
  - MALAISE [None]
  - MEMORY IMPAIRMENT [None]
  - NIGHTMARE [None]
  - PALPITATIONS [None]
  - PANIC ATTACK [None]
  - PANIC REACTION [None]
  - PARAESTHESIA [None]
  - RESTLESSNESS [None]
  - SENSORY DISTURBANCE [None]
  - SLEEP DISORDER [None]
  - SUICIDAL IDEATION [None]
  - TINNITUS [None]
  - TREMOR [None]
  - VERTIGO [None]
  - WITHDRAWAL SYNDROME [None]
